FAERS Safety Report 17954654 (Version 1)
Quarter: 2020Q2

REPORT INFORMATION
  Report Type: Spontaneous
  Country: AU (occurrence: AU)
  Receive Date: 20200629
  Receipt Date: 20200629
  Transmission Date: 20200714
  Serious: Yes (Other)
  Sender: FDA-Public Use
  Company Number: AU-SAMSUNG BIOEPIS-SB-2020-20667

PATIENT
  Age: 30 Year
  Sex: Male

DRUGS (21)
  1. PREDNISONE. [Concomitant]
     Active Substance: PREDNISONE
     Indication: SUSAC^S SYNDROME
     Dosage: UNKNOWN, LOW DOSE, TAPERING COURSE
     Route: 065
  2. RISEDRONATE [Concomitant]
     Active Substance: RISEDRONATE SODIUM
     Indication: PROPHYLAXIS
     Dosage: UNKNOWN
     Route: 065
  3. ASPIRIN. [Concomitant]
     Active Substance: ASPIRIN
     Indication: VASCULAR DISORDER PROPHYLAXIS
     Dosage: UNKNOWN
     Route: 065
  4. INFLIXIMAB [Suspect]
     Active Substance: INFLIXIMAB
     Dosage: MAINTENANCE DOSE
     Route: 065
  5. PREDNISOLONE. [Concomitant]
     Active Substance: PREDNISOLONE
     Dosage: (0.18 MG/KG)
     Route: 048
  6. PREDNISOLONE. [Concomitant]
     Active Substance: PREDNISOLONE
     Indication: SUSAC^S SYNDROME
     Route: 048
  7. MYCOPHENOLATE MOFETIL. [Suspect]
     Active Substance: MYCOPHENOLATE MOFETIL
     Indication: SUSAC^S SYNDROME
     Route: 065
  8. CYCLOPHOSPHAMIDE. [Concomitant]
     Active Substance: CYCLOPHOSPHAMIDE
     Indication: SUSAC^S SYNDROME
     Dosage: 1 GRAM (15 MG/KG) MONTHLY FOR SIX MONTHS
     Route: 042
  9. METHYLPREDNISOLONE. [Concomitant]
     Active Substance: METHYLPREDNISOLONE
     Indication: PRODUCT USED FOR UNKNOWN INDICATION
     Dosage: FOR THREE DAYS
     Route: 042
  10. INFLIXIMAB [Suspect]
     Active Substance: INFLIXIMAB
     Dosage: AT WEEK TWO
     Route: 065
  11. CORTICOSTEROID [Concomitant]
     Active Substance: CORTICOSTEROID NOS
     Indication: SUSAC^S SYNDROME
     Dosage: UNKNOWN, HIGH DOSE POTENT
     Route: 048
  12. PREDNISOLONE. [Concomitant]
     Active Substance: PREDNISOLONE
     Route: 048
  13. METHYLPREDNISOLONE. [Concomitant]
     Active Substance: METHYLPREDNISOLONE
     Indication: SUSAC^S SYNDROME
     Dosage: TAPPERING COURSE
     Route: 042
  14. IMMUNOGLOBULIN [Concomitant]
     Indication: SUSAC^S SYNDROME
     Dosage: LOADING DOSE
     Route: 042
  15. INFLIXIMAB [Suspect]
     Active Substance: INFLIXIMAB
     Dosage: AT WEEK SIX
     Route: 065
  16. ASPIRIN. [Concomitant]
     Active Substance: ASPIRIN
     Indication: ANTICOAGULANT THERAPY
  17. INFLIXIMAB [Suspect]
     Active Substance: INFLIXIMAB
     Indication: SUSAC^S SYNDROME
     Dosage: AT WEEK ZERO
     Route: 065
  18. RITUXIMAB. [Concomitant]
     Active Substance: RITUXIMAB
     Indication: SUSAC^S SYNDROME
     Dosage: FOR FOUR WEEKS
     Route: 065
  19. METHYLPREDNISOLONE. [Concomitant]
     Active Substance: METHYLPREDNISOLONE
     Dosage: RE-ADMINISTERED FOR THREE DAYS
     Route: 042
  20. COTRIMOXAZOLE [Concomitant]
     Active Substance: SULFAMETHOXAZOLE\TRIMETHOPRIM
     Indication: ANTIFUNGAL PROPHYLAXIS
     Dosage: UNKNOWN
     Route: 065
  21. IMMUNOGLOBULIN [Concomitant]
     Dosage: FOR SIX MONTHS
     Route: 042

REACTIONS (2)
  - Off label use [Unknown]
  - Immunosuppression [Unknown]
